FAERS Safety Report 5466456-0 (Version None)
Quarter: 2007Q3

REPORT INFORMATION
  Report Type: 
  Country: None (occurrence: None)
  Receive Date: 20070820
  Receipt Date: 20070601
  Transmission Date: 20080115
  Serious: No
  Sender: FDA-Public Use
  Company Number: WAES 0706USA00320

PATIENT
  Age: 62 Year
  Sex: Male

DRUGS (7)
  1. JANUVIA [Suspect]
     Indication: TYPE 2 DIABETES MELLITUS
     Dosage: 100 MG/DAILY/PO
     Route: 048
     Dates: start: 20070504, end: 20070522
  2. ACCUPRIL [Concomitant]
  3. PREVACID [Concomitant]
  4. VYTORIN [Concomitant]
  5. GLYBURIDE [Concomitant]
  6. METFORMIN HCL [Concomitant]
  7. TRAZODONE HYDROCHLORIDE [Concomitant]

REACTIONS (3)
  - DYSPEPSIA [None]
  - STOMACH DISCOMFORT [None]
  - VOMITING [None]
